FAERS Safety Report 8849835 (Version 1)
Quarter: 2012Q4

REPORT INFORMATION
  Report Type: 
  Country: DE (occurrence: DE)
  Receive Date: 20121019
  Receipt Date: 20121019
  Transmission Date: 20130627
  Serious: Yes (Other)
  Sender: FDA-Public Use
  Company Number: DE-ELI_LILLY_AND_COMPANY-DE201210003085

PATIENT
  Sex: Male

DRUGS (8)
  1. BYDUREON [Suspect]
     Indication: DIABETES MELLITUS
     Dosage: 2 mg, weekly (1/W)
     Route: 058
     Dates: start: 201206
  2. METFORMIN [Concomitant]
     Dosage: 1000 mg, bid
  3. RAMIPRIL [Concomitant]
     Dosage: 5 mg, each morning
  4. HYDROCHLOROTHIAZIDE [Concomitant]
     Dosage: 12.5 mg, each morning
  5. SIMVASTATIN [Concomitant]
     Dosage: UNK, each evening
  6. ALLOPURINOL [Concomitant]
     Dosage: 300 mg, each evening
  7. BRILIQUE [Concomitant]
     Dosage: UNK, each evening
  8. ASS [Concomitant]
     Dosage: 100 DF, qd

REACTIONS (1)
  - Cardiac operation [Unknown]
